FAERS Safety Report 7569984-7 (Version None)
Quarter: 2011Q2

REPORT INFORMATION
  Report Type: 
  Country: None (occurrence: None)
  Receive Date: 20110525
  Receipt Date: 20110413
  Transmission Date: 20111010
  Serious: No
  Sender: FDA-Public Use
  Company Number: 325609

PATIENT
  Age: 60 Year
  Sex: Female
  Weight: 52.2 kg

DRUGS (1)
  1. VICTOZA [Suspect]
     Indication: TYPE 2 DIABETES MELLITUS
     Dosage: 0.6 MG, QD, SUBCUTANEOUS
     Route: 058
     Dates: start: 20110310

REACTIONS (2)
  - WEIGHT DECREASED [None]
  - INJECTION SITE HAEMATOMA [None]
